FAERS Safety Report 16237833 (Version 1)
Quarter: 2019Q2

REPORT INFORMATION
  Report Type: Spontaneous
  Country: US (occurrence: US)
  Receive Date: 20190425
  Receipt Date: 20190425
  Transmission Date: 20190711
  Serious: Yes (Other)
  Sender: FDA-Public Use
  Company Number: US-COLLEGIUM PHARMACEUTICAL, INC.-2019CGM00119

PATIENT
  Age: 66 Year
  Sex: Male

DRUGS (1)
  1. XTAMPZA ER [Suspect]
     Active Substance: OXYCODONE
     Indication: PAIN
     Dosage: OPENING THE CAPSULES AND PUTTING CONTENTS IN APPLESAUCE
     Route: 048

REACTIONS (2)
  - Hospice care [Not Recovered/Not Resolved]
  - Product administration error [Not Recovered/Not Resolved]
